FAERS Safety Report 12430297 (Version 6)
Quarter: 2016Q3

REPORT INFORMATION
  Report Type: Spontaneous
  Country: US (occurrence: US)
  Receive Date: 20160602
  Receipt Date: 20160906
  Transmission Date: 20161109
  Serious: Yes (Hospitalization)
  Sender: FDA-Public Use
  Company Number: US-GLAXOSMITHKLINE-US2016078706

PATIENT
  Sex: Female

DRUGS (8)
  1. AMANTADINE [Concomitant]
     Active Substance: AMANTADINE
  2. SELEGILINE [Concomitant]
     Active Substance: SELEGILINE
  3. WARFARIN [Concomitant]
     Active Substance: WARFARIN
  4. ATENOLOL. [Concomitant]
     Active Substance: ATENOLOL
  5. ADVAIR DISKUS [Suspect]
     Active Substance: FLUTICASONE PROPIONATE\SALMETEROL XINAFOATE
     Indication: CHRONIC OBSTRUCTIVE PULMONARY DISEASE
     Dosage: 1 PUFF(S), BID
     Route: 055
     Dates: start: 2013
  6. PRAVASTATIN. [Concomitant]
     Active Substance: PRAVASTATIN
  7. CARTIA (USA) [Concomitant]
  8. LIPITOR [Concomitant]
     Active Substance: ATORVASTATIN CALCIUM

REACTIONS (5)
  - Malaise [Recovered/Resolved]
  - Dyspnoea [Recovered/Resolved]
  - Device use error [Unknown]
  - Wheezing [Recovered/Resolved]
  - Product quality issue [Unknown]

NARRATIVE: CASE EVENT DATE: 2013
